FAERS Safety Report 6368907-6 (Version None)
Quarter: 2009Q3

REPORT INFORMATION
  Report Type: 
  Country: None (occurrence: None)
  Receive Date: 20090917
  Receipt Date: 20090917
  Transmission Date: 20100115
  Serious: Yes (Disabling)
  Sender: FDA-Public Use
  Company Number: None

PATIENT
  Age: 43 Year
  Sex: Female

DRUGS (17)
  1. TEGRETOL [Suspect]
  2. SEROQUEL [Suspect]
  3. LAMICTAL [Suspect]
  4. ABILIFY [Suspect]
  5. LITHIUM CARBONATE [Suspect]
  6. LEVOTHYROXINE SODIUM [Concomitant]
  7. METFORMIN [Concomitant]
  8. PREMARIN [Concomitant]
  9. FLONASE [Concomitant]
  10. IBUPROFEN [Concomitant]
  11. SUDAFED 12 HOUR [Concomitant]
  12. TUMS [Concomitant]
  13. PRILOSEC [Suspect]
  14. TRICOR [Concomitant]
  15. DARVOCET-N 100 [Concomitant]
  16. CYMBALTA [Suspect]
  17. KLONOPIN [Concomitant]

REACTIONS (9)
  - ANTICONVULSANT DRUG LEVEL INCREASED [None]
  - ATRIOVENTRICULAR BLOCK FIRST DEGREE [None]
  - BALANCE DISORDER [None]
  - CARDIAC DISORDER [None]
  - DRUG INTERACTION [None]
  - ELECTROCARDIOGRAM T WAVE ABNORMAL [None]
  - GAIT DISTURBANCE [None]
  - NEUROTOXICITY [None]
  - POTENTIATING DRUG INTERACTION [None]
